FAERS Safety Report 10403165 (Version 3)
Quarter: 2014Q3

REPORT INFORMATION
  Report Type: Spontaneous
  Country: US (occurrence: US)
  Receive Date: 20140822
  Receipt Date: 20140910
  Transmission Date: 20150326
  Serious: Yes (Other)
  Sender: FDA-Public Use
  Company Number: US-GLAXOSMITHKLINE-A1085982A

PATIENT
  Sex: Female
  Weight: 84.1 kg

DRUGS (15)
  1. DEPAKOTE [Concomitant]
     Active Substance: DIVALPROEX SODIUM
  2. PROMACTA [Suspect]
     Active Substance: ELTROMBOPAG OLAMINE
     Indication: THROMBOCYTOPENIA
     Dosage: 50MG PER DAY
     Route: 065
     Dates: start: 20140810
  3. METOPROLOL [Concomitant]
     Active Substance: METOPROLOL
  4. MULTIVITAMINS [Concomitant]
     Active Substance: VITAMINS
  5. TRADJENTA [Concomitant]
     Active Substance: LINAGLIPTIN
  6. EFFIENT [Concomitant]
     Active Substance: PRASUGREL HYDROCHLORIDE
  7. LANTUS [Concomitant]
     Active Substance: INSULIN GLARGINE
  8. NOVOLOG [Concomitant]
     Active Substance: INSULIN ASPART
  9. ISOSORBIDE [Concomitant]
     Active Substance: ISOSORBIDE
  10. FELODIPINE. [Concomitant]
     Active Substance: FELODIPINE
  11. LEVOTHYROXINE [Concomitant]
     Active Substance: LEVOTHYROXINE
  12. BIOTIN [Concomitant]
     Active Substance: BIOTIN
  13. NITROGLYCERIN. [Concomitant]
     Active Substance: NITROGLYCERIN
  14. DIAZEPAM. [Concomitant]
     Active Substance: DIAZEPAM
  15. FENOFIBRATE. [Concomitant]
     Active Substance: FENOFIBRATE

REACTIONS (9)
  - Splenectomy [Unknown]
  - Dizziness [Unknown]
  - Blood cholesterol abnormal [Unknown]
  - Chest pain [Unknown]
  - Dyspnoea [Unknown]
  - Eye disorder [Unknown]
  - Hyperhidrosis [Unknown]
  - Feeling cold [Unknown]
  - Weight increased [Unknown]
